FAERS Safety Report 9915931 (Version 2)
Quarter: 2014Q1

REPORT INFORMATION
  Report Type: Spontaneous
  Country: US (occurrence: US)
  Receive Date: 20140221
  Receipt Date: 20140226
  Transmission Date: 20141002
  Serious: Yes (Other)
  Sender: FDA-Public Use
  Company Number: US-OTSUKA-US-2014-10321

PATIENT
  Sex: 0

DRUGS (3)
  1. PLETAL [Suspect]
     Indication: PERIPHERAL VASCULAR DISORDER
     Dosage: 50 MG MILLIGRAM(S), BID
     Dates: end: 201402
  2. ALLOPURINOL [Concomitant]
     Indication: GOUT
     Dosage: UNK
  3. IMDUR [Concomitant]
     Indication: PRODUCT USED FOR UNKNOWN INDICATION
     Dosage: UNK

REACTIONS (4)
  - Coronary artery occlusion [Not Recovered/Not Resolved]
  - Chest pain [Unknown]
  - Dyspnoea [Unknown]
  - Drug dose omission [Unknown]
